FAERS Safety Report 12931938 (Version 1)
Quarter: 2016Q4

REPORT INFORMATION
  Report Type: Spontaneous
  Country: US (occurrence: US)
  Receive Date: 20161111
  Receipt Date: 20161111
  Transmission Date: 20170207
  Serious: No
  Sender: FDA-Public Use
  Company Number: US-HORIZON-PEN-0529-2016

PATIENT
  Age: 53 Year
  Sex: Female

DRUGS (1)
  1. PENNSAID [Suspect]
     Active Substance: DICLOFENAC SODIUM
     Indication: OSTEOARTHRITIS
     Route: 061
     Dates: start: 201608

REACTIONS (1)
  - Application site rash [Unknown]
